FAERS Safety Report 7967743-4 (Version None)
Quarter: 2011Q4

REPORT INFORMATION
  Report Type: 
  Country: None (occurrence: None)
  Receive Date: 20111209
  Receipt Date: 20111209
  Transmission Date: 20120403
  Serious: Yes (Life-Threatening, Hospitalization)
  Sender: FDA-Public Use
  Company Number: None

PATIENT
  Age: 23 Year
  Sex: Female
  Weight: 56.699 kg

DRUGS (1)
  1. MIRENA [Suspect]
     Indication: CONTRACEPTION
     Dates: start: 20070910, end: 20091120

REACTIONS (11)
  - MATERNAL EXPOSURE DURING PREGNANCY [None]
  - FEAR [None]
  - DEVICE DISLOCATION [None]
  - PREGNANCY WITH CONTRACEPTIVE DEVICE [None]
  - EMOTIONAL DISORDER [None]
  - SOFT TISSUE DISORDER [None]
  - SCAR [None]
  - PAIN [None]
  - ANTEPARTUM HAEMORRHAGE [None]
  - MALAISE [None]
  - POSTPARTUM HAEMORRHAGE [None]
